FAERS Safety Report 25171409 (Version 1)
Quarter: 2025Q2

REPORT INFORMATION
  Report Type: Spontaneous
  Country: FR (occurrence: FR)
  Receive Date: 20250408
  Receipt Date: 20250408
  Transmission Date: 20250717
  Serious: Yes (Death)
  Sender: DEXCEL
  Company Number: None

PATIENT
  Age: 67 Year
  Sex: Male
  Weight: 70 kg

DRUGS (2)
  1. CHLORHEXIDINE GLUCONATE [Suspect]
     Active Substance: CHLORHEXIDINE GLUCONATE
     Indication: Medication error
     Route: 022
     Dates: start: 20240326, end: 20240326
  2. ISOSORBIDE [Concomitant]
     Active Substance: ISOSORBIDE
     Indication: Incorrect dose administered
     Route: 050

REACTIONS (2)
  - Cardio-respiratory arrest [Fatal]
  - Wrong product administered [Fatal]

NARRATIVE: CASE EVENT DATE: 20240326
